FAERS Safety Report 19930007 (Version 1)
Quarter: 2021Q4

REPORT INFORMATION
  Report Type: Report from Study
  Country: IT (occurrence: IT)
  Receive Date: 20211007
  Receipt Date: 20211007
  Transmission Date: 20220303
  Serious: Yes (Other)
  Sender: FDA-Public Use
  Company Number: IT-ALNYLAM PHARMACEUTICALS, INC.-ALN-2019-000743

PATIENT

DRUGS (6)
  1. ONPATTRO [Suspect]
     Active Substance: PATISIRAN SODIUM
     Indication: Hereditary neuropathic amyloidosis
     Dosage: 0.3 MILLIGRAM/KILOGRAM EVERY 21 DAYS
     Route: 042
     Dates: start: 20190208
  2. PANTOPRAZOLE [Concomitant]
     Active Substance: PANTOPRAZOLE
     Indication: Product used for unknown indication
     Dosage: 20 MILLIGRAM, QD
     Dates: start: 2017
  3. TAFAMIDIS MEGLUMINE [Concomitant]
     Active Substance: TAFAMIDIS MEGLUMINE
     Indication: Product used for unknown indication
     Dosage: 20 MILLIGRAM, QD
     Dates: start: 2017
  4. RIVAROXABAN [Concomitant]
     Active Substance: RIVAROXABAN
     Indication: Product used for unknown indication
     Dosage: 20 MILLIGRAM, QD
     Dates: start: 201804
  5. BISOPROLOL [Concomitant]
     Active Substance: BISOPROLOL
     Indication: Product used for unknown indication
     Dosage: 1.25 MILLIGRAM, QD
     Dates: start: 201804
  6. FUROSEMIDE [Concomitant]
     Active Substance: FUROSEMIDE
     Indication: Product used for unknown indication
     Dosage: 25 MILLIGRAM, QOD
     Dates: start: 201807

REACTIONS (1)
  - Vitreous detachment [Recovered/Resolved]

NARRATIVE: CASE EVENT DATE: 20190926
